FAERS Safety Report 7773127-4 (Version None)
Quarter: 2011Q3

REPORT INFORMATION
  Report Type: 
  Country: None (occurrence: None)
  Receive Date: 20110922
  Receipt Date: 20100909
  Transmission Date: 20111222
  Serious: No
  Sender: FDA-Public Use
  Company Number: US-ASTRAZENECA-2009SE23540

PATIENT
  Age: 12997 Day
  Sex: Female
  Weight: 101.6 kg

DRUGS (1)
  1. SEROQUEL [Suspect]
     Route: 048
     Dates: start: 20000101

REACTIONS (2)
  - TYPE 2 DIABETES MELLITUS [None]
  - GESTATIONAL DIABETES [None]
